FAERS Safety Report 6822173-3 (Version None)
Quarter: 2010Q3

REPORT INFORMATION
  Report Type: 
  Country: None (occurrence: None)
  Receive Date: 20100708
  Receipt Date: 20100701
  Transmission Date: 20110219
  Serious: Yes (Other)
  Sender: FDA-Public Use
  Company Number: US-JNJFOC-20100700876

PATIENT
  Sex: Female
  Weight: 52.16 kg

DRUGS (2)
  1. ORTHO TRI-CYCLEN [Suspect]
     Indication: CONTRACEPTION
     Route: 048
  2. LEVOXYL [Concomitant]
     Indication: THYROID DISORDER
     Route: 048

REACTIONS (4)
  - DRY SKIN [None]
  - MUSCLE SPASMS [None]
  - ONYCHOMADESIS [None]
  - SKIN ATROPHY [None]
